FAERS Safety Report 11239442 (Version 1)
Quarter: 2015Q3

REPORT INFORMATION
  Report Type: Report from Study
  Country: US (occurrence: US)
  Receive Date: 20150706
  Receipt Date: 20150706
  Transmission Date: 20151125
  Serious: No
  Sender: FDA-Public Use
  Company Number: PHEH2015US012120

PATIENT
  Sex: Male
  Weight: 136.5 kg

DRUGS (1)
  1. GILENYA [Suspect]
     Active Substance: FINGOLIMOD HYDROCHLORIDE
     Indication: MULTIPLE SCLEROSIS
     Dosage: 0.5 MG, QD
     Route: 048
     Dates: start: 20150206

REACTIONS (6)
  - Hallucination, auditory [Unknown]
  - Headache [Unknown]
  - Hallucination, visual [Recovered/Resolved]
  - Nasopharyngitis [Unknown]
  - Irritability [Recovered/Resolved]
  - Nightmare [Recovered/Resolved]
